FAERS Safety Report 7249003-2 (Version None)
Quarter: 2011Q1

REPORT INFORMATION
  Report Type: 
  Country: None (occurrence: None)
  Receive Date: 20110106
  Receipt Date: 20101228
  Transmission Date: 20110831
  Serious: Yes (Other)
  Sender: FDA-Public Use
  Company Number: 2010027083

PATIENT
  Sex: Female

DRUGS (2)
  1. BERINERT [Suspect]
     Indication: HEREDITARY ANGIOEDEMA
  2. COMPLEMENT C1 ESTERASE INHIBITOR (COMPLEMENT C1 ESTERASE INHIBITOR) [Concomitant]

REACTIONS (2)
  - C1 ESTERASE INHIBITOR DECREASED [None]
  - DRUG EXPOSURE DURING PREGNANCY [None]
